FAERS Safety Report 8433203 (Version 8)
Quarter: 2013Q1

REPORT INFORMATION
  Report Type: Spontaneous
  Country: US (occurrence: US)
  Receive Date: 20120229
  Receipt Date: 20130123
  Transmission Date: 20140127
  Serious: Yes (Disabling, Other)
  Sender: FDA-Public Use
  Company Number: US-009507513-1202USA03898

PATIENT
  Sex: 0

DRUGS (4)
  1. FOSAMAX [Suspect]
     Indication: OSTEOPOROSIS
     Route: 048
     Dates: start: 2002, end: 200804
  2. FOSAMAX [Suspect]
     Dosage: UNK
     Dates: start: 2000
  3. CALCIUM (UNSPECIFIED) [Concomitant]
  4. ACTONEL [Suspect]
     Dosage: UNK
     Dates: start: 2000

REACTIONS (18)
  - Jaw disorder [Not Recovered/Not Resolved]
  - Osteonecrosis of jaw [Recovering/Resolving]
  - Bone loss [Unknown]
  - Device failure [Unknown]
  - Osteomyelitis [Recovering/Resolving]
  - Hypercholesterolaemia [Unknown]
  - Infection [Not Recovered/Not Resolved]
  - Tooth disorder [Unknown]
  - Osteoarthritis [Unknown]
  - Oral cavity fistula [Unknown]
  - Malocclusion [Unknown]
  - Gingival oedema [Unknown]
  - Gingival erythema [Unknown]
  - Gingival infection [Unknown]
  - Breast cancer [Unknown]
  - Concussion [Unknown]
  - Gingival inflammation [Recovered/Resolved]
  - Tooth extraction [Unknown]
